FAERS Safety Report 21961396 (Version 1)
Quarter: 2023Q1

REPORT INFORMATION
  Report Type: Report from Study
  Country: US (occurrence: US)
  Receive Date: 20230207
  Receipt Date: 20230207
  Transmission Date: 20230417
  Serious: Yes (Other)
  Sender: FDA-Public Use
  Company Number: US-SA-SAC20230206000364

PATIENT
  Age: 76 Year
  Sex: Female

DRUGS (13)
  1. BELUMOSUDIL MESYLATE [Suspect]
     Active Substance: BELUMOSUDIL MESYLATE
     Indication: Graft versus host disease
     Dosage: 200 MG, BID
     Route: 048
     Dates: start: 20220126
  2. PREDNISONE [Concomitant]
     Active Substance: PREDNISONE
     Dosage: 5MG QOD
  3. PREDNISONE [Concomitant]
     Active Substance: PREDNISONE
     Dosage: 15MG QOD
  4. VITAMIN C [Concomitant]
     Active Substance: ASCORBIC ACID
  5. ACYCLOVIR [Concomitant]
     Active Substance: ACYCLOVIR
  6. CLOBETASOL [Concomitant]
     Active Substance: CLOBETASOL
  7. ROSUVASTATIN [Concomitant]
     Active Substance: ROSUVASTATIN
  8. LOSARTAN [Concomitant]
     Active Substance: LOSARTAN
  9. TRIAMCINOLONE [Concomitant]
     Active Substance: TRIAMCINOLONE
  10. VORICONAZOLE [Concomitant]
     Active Substance: VORICONAZOLE
  11. FISH OIL [Concomitant]
     Active Substance: FISH OIL
  12. VITAMIN D NOS [Concomitant]
     Active Substance: VITAMIN D NOS
  13. VITAMIN B12 [Concomitant]
     Active Substance: CYANOCOBALAMIN

REACTIONS (2)
  - Haemorrhage [Not Recovered/Not Resolved]
  - Contusion [Not Recovered/Not Resolved]
